FAERS Safety Report 7502957-9 (Version None)
Quarter: 2011Q2

REPORT INFORMATION
  Report Type: 
  Country: None (occurrence: None)
  Receive Date: 20110525
  Receipt Date: 20100910
  Transmission Date: 20111010
  Serious: No
  Sender: FDA-Public Use
  Company Number: US-NOVEN-ALL1-2010-04816

PATIENT
  Sex: Male
  Weight: 22.676 kg

DRUGS (3)
  1. DAYTRANA [Suspect]
     Dosage: 15 MG, 1X/DAY:QD
     Route: 062
     Dates: start: 20100908
  2. STRATTERA [Concomitant]
     Dosage: 10 MG, 1X/DAY:QD, 4 PM
     Route: 048
  3. STRATTERA [Concomitant]
     Dosage: 18 MG, 1X/DAY:QD, BEDTIME
     Route: 048

REACTIONS (1)
  - TIC [None]
